FAERS Safety Report 7681529-X (Version None)
Quarter: 2011Q3

REPORT INFORMATION
  Report Type: 
  Country: None (occurrence: None)
  Receive Date: 20110812
  Receipt Date: 20110808
  Transmission Date: 20111222
  Serious: Yes (Death, Other)
  Sender: FDA-Public Use
  Company Number: PHHY2011CA71782

PATIENT
  Age: 14 Year
  Sex: Female

DRUGS (4)
  1. THIOTEPA [Concomitant]
     Indication: STEM CELL TRANSPLANT
     Dosage: 5 MG/KG, UNK
  2. MELPHALAN HYDROCHLORIDE [Concomitant]
     Indication: STEM CELL TRANSPLANT
     Dosage: 105 MG/M2, UNK
  3. CYCLOSPORINE [Suspect]
     Indication: STEM CELL TRANSPLANT
     Dosage: UNK UKN, UNK
  4. ANTI-THYMOCYTE GLOBULIN NOS [Concomitant]
     Indication: STEM CELL TRANSPLANT
     Dosage: 5 MG/KG, UNK

REACTIONS (8)
  - CARDIAC FAILURE [None]
  - ALPHA HAEMOLYTIC STREPTOCOCCAL INFECTION [None]
  - GASTROINTESTINAL HAEMORRHAGE [None]
  - ADENOVIRUS INFECTION [None]
  - VENOOCCLUSIVE DISEASE [None]
  - STREPTOCOCCAL SEPSIS [None]
  - MULTI-ORGAN FAILURE [None]
  - TRANSIENT ISCHAEMIC ATTACK [None]
